FAERS Safety Report 12366116 (Version 1)
Quarter: 2016Q2

REPORT INFORMATION
  Report Type: Spontaneous
  Country: AU (occurrence: AU)
  Receive Date: 20160513
  Receipt Date: 20160513
  Transmission Date: 20160815
  Serious: Yes (Other)
  Sender: FDA-Public Use
  Company Number: AU-BTG INTERNATIONAL LTD-BTG00693

PATIENT

DRUGS (1)
  1. DIGIFAB [Suspect]
     Active Substance: OVINE DIGOXIN IMMUNE FAB
     Indication: TOXICITY TO VARIOUS AGENTS
     Dosage: ADMINISTERED OVER 20-30 MINS
     Route: 042

REACTIONS (4)
  - Sinus tachycardia [Unknown]
  - Sinus node dysfunction [Unknown]
  - Ventricular tachycardia [Unknown]
  - Cardiac failure [Unknown]
